FAERS Safety Report 11177664 (Version 1)
Quarter: 2015Q2

REPORT INFORMATION
  Report Type: Spontaneous
  Country: US (occurrence: US)
  Receive Date: 20150610
  Receipt Date: 20150610
  Transmission Date: 20150821
  Serious: No
  Sender: FDA-Public Use
  Company Number: US-PFIZER INC-2015191846

PATIENT
  Age: 34 Year
  Sex: Female
  Weight: 78 kg

DRUGS (1)
  1. SKELAXIN [Suspect]
     Active Substance: METAXALONE
     Indication: PAIN
     Dosage: 800 MG, UNK, (TWICE OR THREE TIMES A DAY)
     Dates: end: 2012

REACTIONS (1)
  - Drug ineffective [Unknown]
